FAERS Safety Report 5988509-0 (Version None)
Quarter: 2008Q4

REPORT INFORMATION
  Report Type: 
  Country: None (occurrence: None)
  Receive Date: 20081208
  Receipt Date: 20081208
  Transmission Date: 20090506
  Serious: Yes (Other)
  Sender: FDA-Public Use
  Company Number: None

PATIENT
  Age: 48 Year
  Sex: Female
  Weight: 97.0698 kg

DRUGS (2)
  1. FLUOROURACIL [Suspect]
     Indication: ACTINIC KERATOSIS
     Dosage: APPLY TO HANDS ONCE A DAY TOP
     Route: 061
     Dates: start: 20081107, end: 20081125
  2. FLUOROURACIL [Suspect]
     Indication: PRECANCEROUS SKIN LESION
     Dosage: APPLY TO HANDS ONCE A DAY TOP
     Route: 061
     Dates: start: 20081107, end: 20081125

REACTIONS (1)
  - DRUG HYPERSENSITIVITY [None]
